FAERS Safety Report 9149994 (Version 2)
Quarter: 2013Q1

REPORT INFORMATION
  Report Type: Spontaneous
  Country: US (occurrence: US)
  Receive Date: 20130308
  Receipt Date: 20130312
  Transmission Date: 20140127
  Serious: No
  Sender: FDA-Public Use
  Company Number: US-009507513-1303USA003780

PATIENT
  Sex: Male

DRUGS (2)
  1. AFRIN SPRAY [Suspect]
     Indication: PRODUCT USED FOR UNKNOWN INDICATION
     Dosage: UNK, UNKNOWN
     Route: 045
  2. AFRIN SPRAY [Suspect]
     Dosage: UNK

REACTIONS (2)
  - Choking [Unknown]
  - Accidental exposure to product [Unknown]
